FAERS Safety Report 8889026 (Version 1)
Quarter: 2012Q4

REPORT INFORMATION
  Report Type: 
  Country: US (occurrence: US)
  Receive Date: 20121106
  Receipt Date: 20121106
  Transmission Date: 20130627
  Serious: Yes (Hospitalization, Disabling, Other)
  Sender: FDA-Public Use
  Company Number: US-009507513-0705USA01439

PATIENT

DRUGS (3)
  1. FOSAMAX [Suspect]
     Indication: OSTEOPOROSIS
     Route: 048
     Dates: start: 2002
  2. FOSAMAX [Suspect]
     Dosage: 70 mg, QW
     Route: 048
     Dates: start: 20030707, end: 20050523
  3. BONIVA [Suspect]
     Indication: OSTEOPOROSIS
     Dates: start: 20050523, end: 20060809

REACTIONS (123)
  - Osteonecrosis of jaw [Unknown]
  - Osteomyelitis [Unknown]
  - Tooth loss [Unknown]
  - Oral infection [Unknown]
  - Depression [Unknown]
  - Clavicle fracture [Unknown]
  - Haemangioma of liver [Not Recovered/Not Resolved]
  - Hepatic cirrhosis [Not Recovered/Not Resolved]
  - Memory impairment [Not Recovered/Not Resolved]
  - Muscle spasticity [Unknown]
  - Pulpitis dental [Unknown]
  - Anxiety [Unknown]
  - Nausea [Not Recovered/Not Resolved]
  - Cellulitis [Unknown]
  - Hiatus hernia [Not Recovered/Not Resolved]
  - Abdominal pain upper [Unknown]
  - Diarrhoea [Unknown]
  - Back pain [Not Recovered/Not Resolved]
  - Fall [Unknown]
  - Head injury [Unknown]
  - Loss of consciousness [Unknown]
  - Fall [Unknown]
  - Hepatic encephalopathy [Unknown]
  - Dermatitis [Unknown]
  - Nutritional condition abnormal [Unknown]
  - Hyponatraemia [Unknown]
  - Vitamin B12 deficiency [Unknown]
  - Folate deficiency [Unknown]
  - Hypokalaemia [Unknown]
  - Thrombocytopenia [Not Recovered/Not Resolved]
  - Gastrointestinal disorder [Unknown]
  - Mass [Unknown]
  - Coagulopathy [Unknown]
  - Microcytic anaemia [Unknown]
  - Anaemia [Not Recovered/Not Resolved]
  - Chronic hepatic failure [Not Recovered/Not Resolved]
  - Varices oesophageal [Recovered/Resolved]
  - Portal hypertensive gastropathy [Recovered/Resolved]
  - Gastric haemorrhage [Unknown]
  - Cellulitis [Unknown]
  - Hyponatraemic encephalopathy [Recovering/Resolving]
  - Hypokalaemia [Recovered/Resolved]
  - Drug abuse [Unknown]
  - Drug administration error [Unknown]
  - Convulsion [Unknown]
  - Psychotic disorder [Unknown]
  - Rib fracture [Unknown]
  - Hepatitis B [Unknown]
  - Wound complication [Unknown]
  - Oedema peripheral [Unknown]
  - Migraine [Unknown]
  - Influenza like illness [Unknown]
  - Somnambulism [Unknown]
  - Pyrexia [Recovering/Resolving]
  - Cough [Recovering/Resolving]
  - Extrapyramidal disorder [Not Recovered/Not Resolved]
  - Malnutrition [Unknown]
  - Vitamin D deficiency [Unknown]
  - Decubitus ulcer [Unknown]
  - Weight decreased [Unknown]
  - Urosepsis [Unknown]
  - Pyelonephritis [Unknown]
  - Ammonia increased [Unknown]
  - Encephalopathy [Recovered/Resolved]
  - Influenza like illness [Unknown]
  - Pyrexia [Unknown]
  - Rectal haemorrhage [Unknown]
  - Anaemia [Not Recovered/Not Resolved]
  - Hypokalaemia [Not Recovered/Not Resolved]
  - Fall [Unknown]
  - Sinusitis [Unknown]
  - Haematoma [Unknown]
  - Vomiting [Unknown]
  - Fall [Unknown]
  - Arthralgia [Not Recovered/Not Resolved]
  - Osteopenia [Unknown]
  - Cough [Not Recovered/Not Resolved]
  - Mobility decreased [Unknown]
  - Upper gastrointestinal haemorrhage [Unknown]
  - Urinary tract infection [Unknown]
  - Portal hypertensive gastropathy [Not Recovered/Not Resolved]
  - Hypovolaemia [Recovered/Resolved]
  - Cardiac arrest [Unknown]
  - Gastrointestinal haemorrhage [Unknown]
  - Acute respiratory failure [Unknown]
  - Ventricular fibrillation [Unknown]
  - Fall [Unknown]
  - Humerus fracture [Unknown]
  - Tooth loss [Unknown]
  - Swelling face [Unknown]
  - Facial pain [Unknown]
  - Hypokalaemia [Unknown]
  - Hypotension [Not Recovered/Not Resolved]
  - Eating disorder [Unknown]
  - Encephalopathy [Recovering/Resolving]
  - Hypokalaemia [Unknown]
  - Clavicle fracture [Unknown]
  - Hypoxia [Unknown]
  - Myocardial infarction [Unknown]
  - Nausea [Unknown]
  - Vomiting [Unknown]
  - Hyperbilirubinaemia [Unknown]
  - Hypokalaemia [Unknown]
  - Hypokalaemia [Unknown]
  - Urinary tract infection [Unknown]
  - Hyponatraemia [Unknown]
  - Oesophagitis [Unknown]
  - Oesophageal varices haemorrhage [Unknown]
  - Waist circumference increased [Unknown]
  - Anuria [Unknown]
  - Treatment noncompliance [Unknown]
  - Haematochezia [Unknown]
  - Melaena [Unknown]
  - Restless legs syndrome [Unknown]
  - Liver disorder [Unknown]
  - Metabolic alkalosis [Unknown]
  - Poor dental condition [Unknown]
  - Limb injury [Unknown]
  - Weight decreased [Unknown]
  - Self-induced vomiting [Unknown]
  - Dyspepsia [Unknown]
  - Inappropriate schedule of drug administration [Unknown]
  - Underweight [Unknown]
